FAERS Safety Report 7045278-3 (Version None)
Quarter: 2010Q4

REPORT INFORMATION
  Report Type: 
  Country: None (occurrence: None)
  Receive Date: 20101014
  Receipt Date: 20100823
  Transmission Date: 20110411
  Serious: No
  Sender: FDA-Public Use
  Company Number: US-ALLERGAN-1010166US

PATIENT
  Sex: Female

DRUGS (3)
  1. LATISSE [Suspect]
     Indication: GROWTH OF EYELASHES
     Dosage: UNK
     Route: 061
  2. MASCARA [Concomitant]
  3. EYELINER [Concomitant]

REACTIONS (4)
  - DRUG INEFFECTIVE [None]
  - EYE PRURITUS [None]
  - OCULAR HYPERAEMIA [None]
  - OVERDOSE [None]
